FAERS Safety Report 21586425 (Version 1)
Quarter: 2022Q4

REPORT INFORMATION
  Report Type: Spontaneous
  Country: US (occurrence: US)
  Receive Date: 20221112
  Receipt Date: 20221112
  Transmission Date: 20230113
  Serious: No
  Sender: FDA-Public Use
  Company Number: US-ELI_LILLY_AND_COMPANY-US202211005312

PATIENT
  Sex: Male

DRUGS (4)
  1. BASAGLAR [Suspect]
     Active Substance: INSULIN GLARGINE
     Indication: Diabetes mellitus
     Dosage: 20 U, UNKNOWN
     Route: 058
     Dates: start: 2017
  2. BASAGLAR [Suspect]
     Active Substance: INSULIN GLARGINE
     Indication: Diabetes mellitus
     Dosage: 20 U, UNKNOWN
     Route: 058
     Dates: start: 2017
  3. BASAGLAR [Suspect]
     Active Substance: INSULIN GLARGINE
     Dosage: 12 U, UNKNOWN
     Route: 058
  4. BASAGLAR [Suspect]
     Active Substance: INSULIN GLARGINE
     Dosage: 12 U, UNKNOWN
     Route: 058

REACTIONS (1)
  - Blood glucose decreased [Unknown]
